FAERS Safety Report 15849385 (Version 1)
Quarter: 2019Q1

REPORT INFORMATION
  Report Type: Spontaneous
  Country: JP (occurrence: JP)
  Receive Date: 20190121
  Receipt Date: 20190121
  Transmission Date: 20190417
  Serious: Yes (Hospitalization)
  Sender: FDA-Public Use
  Company Number: JP-SA-2019SA013151

PATIENT
  Age: 83 Year
  Sex: Male
  Weight: 58 kg

DRUGS (16)
  1. ELPLAT [Suspect]
     Active Substance: OXALIPLATIN
     Dosage: 90 MG, QD
     Route: 041
     Dates: start: 20180926, end: 20180926
  2. FLUOROURACIL 5 FU [Concomitant]
     Active Substance: FLUOROURACIL
     Dosage: UNK
     Dates: start: 20180912, end: 20180912
  3. LEVOFOLINATE DE CALCIUM WINTHROP [Suspect]
     Active Substance: LEVOLEUCOVORIN CALCIUM
     Dosage: 300 MG, QD
     Route: 041
     Dates: start: 20181017, end: 20181017
  4. LEVOFOLINATE DE CALCIUM WINTHROP [Suspect]
     Active Substance: LEVOLEUCOVORIN CALCIUM
     Dosage: 300 MG, QD
     Route: 041
     Dates: start: 20181107, end: 20181107
  5. ELPLAT [Suspect]
     Active Substance: OXALIPLATIN
     Dosage: 90 MG, QD
     Route: 041
     Dates: start: 20181107, end: 20181107
  6. LEVOFOLINATE DE CALCIUM WINTHROP [Suspect]
     Active Substance: LEVOLEUCOVORIN CALCIUM
     Dosage: 300 MG, QD
     Route: 041
     Dates: start: 20181128, end: 20181128
  7. LEVOFOLINATE DE CALCIUM WINTHROP [Suspect]
     Active Substance: LEVOLEUCOVORIN CALCIUM
     Indication: COLON CANCER
     Dosage: 300 MG, QD
     Route: 041
     Dates: start: 20180912, end: 20180912
  8. ELPLAT [Suspect]
     Active Substance: OXALIPLATIN
     Indication: COLON CANCER
     Dosage: 90 MG, QD
     Route: 041
     Dates: start: 20180912, end: 20180912
  9. ELPLAT [Suspect]
     Active Substance: OXALIPLATIN
     Dosage: 90 MG, QD
     Route: 041
     Dates: start: 20181017, end: 20181017
  10. ELPLAT [Suspect]
     Active Substance: OXALIPLATIN
     Dosage: 90 MG, QD
     Route: 041
     Dates: start: 20181128, end: 20181128
  11. ELPLAT [Suspect]
     Active Substance: OXALIPLATIN
     Dosage: 90 MG, QD
     Route: 041
     Dates: start: 20181219, end: 20181219
  12. ELPLAT [Suspect]
     Active Substance: OXALIPLATIN
     Dosage: 90 MG, QD
     Route: 041
     Dates: start: 20190109, end: 20190109
  13. LEVOFOLINATE DE CALCIUM WINTHROP [Suspect]
     Active Substance: LEVOLEUCOVORIN CALCIUM
     Dosage: 300 MG, QD
     Route: 041
     Dates: start: 20181219, end: 20181219
  14. LEVOFOLINATE DE CALCIUM WINTHROP [Suspect]
     Active Substance: LEVOLEUCOVORIN CALCIUM
     Dosage: 300 MG, QD
     Route: 041
     Dates: start: 20190109, end: 20190109
  15. FLUOROURACIL 5 FU [Concomitant]
     Active Substance: FLUOROURACIL
     Dosage: UNK
     Dates: start: 20181219, end: 20181219
  16. LEVOFOLINATE DE CALCIUM WINTHROP [Suspect]
     Active Substance: LEVOLEUCOVORIN CALCIUM
     Dosage: 300 MG, QD
     Route: 041
     Dates: start: 20180926, end: 20180926

REACTIONS (4)
  - Cold sweat [Recovered/Resolved]
  - Blood pressure decreased [Recovered/Resolved]
  - Nasal congestion [Recovered/Resolved]
  - Flushing [Recovered/Resolved]

NARRATIVE: CASE EVENT DATE: 20190109
